FAERS Safety Report 9249871 (Version 1)
Quarter: 2013Q2

REPORT INFORMATION
  Report Type: Spontaneous
  Country: US (occurrence: US)
  Receive Date: 20130423
  Receipt Date: 20130423
  Transmission Date: 20140414
  Serious: Yes (Hospitalization, Other)
  Sender: FDA-Public Use
  Company Number: PHHY2013US038562

PATIENT
  Age: 80 Year
  Sex: Female

DRUGS (1)
  1. HYDRALAZINE [Suspect]

REACTIONS (10)
  - Pulmonary renal syndrome [Unknown]
  - Anti-neutrophil cytoplasmic antibody positive vasculitis [Unknown]
  - Glomerulonephritis rapidly progressive [Unknown]
  - Pulmonary alveolar haemorrhage [Unknown]
  - Renal impairment [Unknown]
  - Lung infiltration [Unknown]
  - Haemoptysis [Recovered/Resolved]
  - Dyspnoea [Unknown]
  - Haematuria [Unknown]
  - Proteinuria [Unknown]
